FAERS Safety Report 8867690 (Version 1)
Quarter: 2012Q4

REPORT INFORMATION
  Report Type: 
  Country: US (occurrence: US)
  Receive Date: 20121025
  Receipt Date: 20121025
  Transmission Date: 20130627
  Serious: No
  Sender: FDA-Public Use
  Company Number: US-AMGEN-USASP2012018152

PATIENT
  Age: 55 Year
  Sex: Female

DRUGS (7)
  1. ENBREL [Suspect]
     Indication: PRODUCT USED FOR UNKNOWN INDICATION
     Dosage: 50 mg, qwk
  2. PRILOSEC                           /00661201/ [Concomitant]
     Dosage: 20 mg, UNK
  3. FOLIC ACID [Concomitant]
     Dosage: 20 mg, UNK
  4. METHOTREXATE [Concomitant]
     Dosage: 20 mg, UNK
  5. SYNTHROID [Concomitant]
     Dosage: 100 mug, UNK
  6. TYLENOL /00020001/ [Concomitant]
     Dosage: 325 mg, UNK
  7. ALEVE [Concomitant]
     Dosage: 220 mg, UNK

REACTIONS (1)
  - Injection site pain [Unknown]
